FAERS Safety Report 9643916 (Version 3)
Quarter: 2014Q2

REPORT INFORMATION
  Report Type: Spontaneous
  Country: US (occurrence: US)
  Receive Date: 20131024
  Receipt Date: 20140624
  Transmission Date: 20141212
  Serious: Yes (Other)
  Sender: FDA-Public Use
  Company Number: US-INCYTE CORPORATION-2013IN002505

PATIENT
  Age: 62 Year
  Sex: Male

DRUGS (5)
  1. JAKAFI [Suspect]
     Indication: MYELOFIBROSIS
     Dosage: 20 MG, BID
     Route: 048
     Dates: start: 2011
  2. JAKAFI [Suspect]
     Indication: MYELOFIBROSIS
  3. JAKAFI [Suspect]
     Indication: PRURITUS
  4. JAKAFI [Suspect]
     Indication: NIGHT SWEATS
  5. DECITABINE [Concomitant]

REACTIONS (2)
  - Leukaemia cutis [Unknown]
  - Chronic myelomonocytic leukaemia [Recovered/Resolved]
